FAERS Safety Report 4645168-7 (Version None)
Quarter: 2005Q2

REPORT INFORMATION
  Report Type: 
  Country: None (occurrence: None)
  Receive Date: 20050331
  Receipt Date: 20041203
  Transmission Date: 20051028
  Serious: No
  Sender: FDA-Public Use
  Company Number: 04P-163-0282189-00

PATIENT
  Age: 50 Year
  Sex: Female
  Weight: 68.0396 kg

DRUGS (7)
  1. HUMIRA [Suspect]
     Indication: RHEUMATOID ARTHRITIS
     Dosage: 40 MG, 1 IN 2 WK, SUBCUTANEOUS
     Route: 058
     Dates: start: 20030101, end: 20041001
  2. METHOTREXATE SODIUM [Concomitant]
  3. SERTRALINE HYDROCHLORIDE [Concomitant]
  4. PREDNISONE TAB [Concomitant]
  5. MEDROXYPROGESTERONE ACETATE [Concomitant]
  6. ESTRADIOL [Concomitant]
  7. DARVOCET [Concomitant]

REACTIONS (1)
  - SINUSITIS [None]
